FAERS Safety Report 9507408 (Version 1)
Quarter: 2013Q3

REPORT INFORMATION
  Report Type: Spontaneous
  Country: US (occurrence: None)
  Receive Date: 20130904
  Receipt Date: 20130904
  Transmission Date: 20140515
  Serious: Yes (Hospitalization)
  Sender: FDA-Public Use
  Company Number: UTC-037233

PATIENT
  Age: 68 Year
  Sex: Male
  Weight: 85 kg

DRUGS (3)
  1. REMODULIN (1 MILLIGRAM/MILLILITERS, INJECTION FOR INFUSION) (TREPOSTINIL SODICUM) [Suspect]
     Indication: PULMONARY ARTERIAL HYPERTENSION
     Dosage: 21.6 UG/KG (0.015 UG/KG, 1 IN 1 MIN)
     Route: 041
     Dates: start: 20130821
  2. ADCIRCA (TADALAFIL) (UNKNOWN) [Concomitant]
  3. VENTAVIS (ILOPROST) (UNKNOWN) [Concomitant]

REACTIONS (3)
  - Oxygen saturation decreased [None]
  - Headache [None]
  - Hypotension [None]
